FAERS Safety Report 5016719-8 (Version None)
Quarter: 2006Q2

REPORT INFORMATION
  Report Type: 
  Country: None (occurrence: None)
  Receive Date: 20060602
  Receipt Date: 20050304
  Transmission Date: 20061013
  Serious: No
  Sender: FDA-Public Use
  Company Number: 20050200175

PATIENT
  Age: 23 Month
  Sex: Male
  Weight: 14.5 kg

DRUGS (3)
  1. AUGMENTIN '125' [Suspect]
     Indication: PNEUMONIA
     Dosage: 400MG TWICE PER DAY
     Route: 048
     Dates: start: 20050126
  2. TYLENOL (CAPLET) [Suspect]
     Dosage: 160MG TWICE PER DAY
     Route: 048
     Dates: start: 20050126, end: 20050127
  3. IBUPROFEN [Concomitant]
     Dosage: 5ML PER DAY
     Dates: start: 20050126, end: 20050127

REACTIONS (4)
  - BLISTER [None]
  - FEELING HOT [None]
  - FLUSHING [None]
  - RASH MACULAR [None]
